FAERS Safety Report 11814723 (Version 1)
Quarter: 2015Q4

REPORT INFORMATION
  Report Type: Spontaneous
  Country: US (occurrence: US)
  Receive Date: 20151209
  Receipt Date: 20151209
  Transmission Date: 20160305
  Serious: No
  Sender: FDA-Public Use
  Company Number: US-ELI_LILLY_AND_COMPANY-US201509006814

PATIENT
  Age: 52 Year
  Sex: Female
  Weight: 48.53 kg

DRUGS (7)
  1. XANAX [Concomitant]
     Active Substance: ALPRAZOLAM
     Indication: ANXIETY
     Dosage: 1 MG, TID; AS NEEDED
     Route: 065
     Dates: start: 20150716
  2. TRAMADOL HCL [Suspect]
     Active Substance: TRAMADOL HYDROCHLORIDE
     Indication: FIBROMYALGIA
     Dosage: UNK, UNKNOWN
     Route: 048
     Dates: start: 20150708
  3. TRAMADOL HCL [Suspect]
     Active Substance: TRAMADOL HYDROCHLORIDE
     Indication: ARTHRALGIA
     Dosage: 50 MG, TID; AS NEEDED
     Route: 048
     Dates: start: 20150805
  4. TRAMADOL HCL [Suspect]
     Active Substance: TRAMADOL HYDROCHLORIDE
     Dosage: 50 MG, QID; AS NEEDED
     Route: 048
     Dates: start: 20150918
  5. LISINOPRIL. [Concomitant]
     Active Substance: LISINOPRIL
     Indication: ESSENTIAL HYPERTENSION
     Dosage: 10 MG, QD
     Route: 048
     Dates: start: 20150408
  6. CYMBALTA [Suspect]
     Active Substance: DULOXETINE HYDROCHLORIDE
     Indication: FIBROMYALGIA
     Dosage: UNK, UNKNOWN
     Route: 048
     Dates: start: 20150805
  7. ASPIRIN                            /00002701/ [Concomitant]
     Active Substance: ASPIRIN
     Indication: EMBOLIC STROKE
     Dosage: 81 MG, AT BEDTIME
     Route: 048

REACTIONS (12)
  - Arthralgia [Unknown]
  - Joint stiffness [Unknown]
  - Pyrexia [Unknown]
  - Myalgia [Unknown]
  - Anxiety [Recovered/Resolved]
  - Back pain [Unknown]
  - Gait disturbance [Unknown]
  - Pain [Unknown]
  - Headache [Unknown]
  - Drug ineffective [Unknown]
  - Tearfulness [Recovered/Resolved]
  - Neck pain [Unknown]

NARRATIVE: CASE EVENT DATE: 20150918
